FAERS Safety Report 7500984-9 (Version None)
Quarter: 2011Q2

REPORT INFORMATION
  Report Type: 
  Country: None (occurrence: None)
  Receive Date: 20110524
  Receipt Date: 20110509
  Transmission Date: 20111010
  Serious: Yes (Other)
  Sender: FDA-Public Use
  Company Number: CH-AMGEN-CHESP2011020432

PATIENT
  Age: 70 Year
  Sex: Female
  Weight: 65 kg

DRUGS (4)
  1. PROLIA [Suspect]
     Indication: OSTEOPOROSIS POSTMENOPAUSAL
     Dosage: 60 MG, Q6MO
     Route: 058
     Dates: start: 20100930, end: 20110315
  2. VITAMIN A [Concomitant]
     Dosage: UNK
     Route: 048
     Dates: start: 20100101
  3. CALCIUM CARBONATE [Concomitant]
  4. STATIN                             /00036501/ [Concomitant]
     Dosage: UNK
     Route: 048
     Dates: start: 19900101

REACTIONS (2)
  - DRUG HYPERSENSITIVITY [None]
  - CONJUNCTIVITIS BACTERIAL [None]
